FAERS Safety Report 10605745 (Version 2)
Quarter: 2014Q4

REPORT INFORMATION
  Report Type: Spontaneous
  Country: US (occurrence: US)
  Receive Date: 20141125
  Receipt Date: 20141125
  Transmission Date: 20150529
  Serious: Yes (Disabling, Other)
  Sender: FDA-Public Use
  Company Number: US-AMGEN-USASP2014029999

PATIENT
  Age: 75 Year
  Sex: Female

DRUGS (4)
  1. MELOXICAM. [Concomitant]
     Active Substance: MELOXICAM
  2. PREDNISONE. [Concomitant]
     Active Substance: PREDNISONE
  3. PROLIA [Suspect]
     Active Substance: DENOSUMAB
     Indication: OSTEOPOROSIS POSTMENOPAUSAL
     Dosage: 60 MG, Q6MO
     Route: 065
     Dates: start: 20131106
  4. HYDROCODONE [Concomitant]
     Active Substance: HYDROCODONE

REACTIONS (12)
  - Hypersensitivity [Unknown]
  - Gait disturbance [Unknown]
  - Pelvic pain [Unknown]
  - Arthralgia [Unknown]
  - Joint crepitation [Unknown]
  - Bedridden [Unknown]
  - Activities of daily living impaired [Unknown]
  - Constipation [Unknown]
  - Disability [Unknown]
  - Joint dislocation [Unknown]
  - Pain [Unknown]
  - Ligament disorder [Unknown]

NARRATIVE: CASE EVENT DATE: 201401
